FAERS Safety Report 11492405 (Version 1)
Quarter: 2015Q3

REPORT INFORMATION
  Report Type: Spontaneous
  Country: IT (occurrence: IT)
  Receive Date: 20150910
  Receipt Date: 20150910
  Transmission Date: 20151125
  Serious: Yes (Death, Hospitalization)
  Sender: FDA-Public Use
  Company Number: IT-EXELIXIS-CABO-15005579

PATIENT
  Age: 63 Year
  Sex: Male
  Weight: 61.6 kg

DRUGS (3)
  1. COMETRIQ [Suspect]
     Active Substance: CABOZANTINIB S-MALATE
     Dosage: 60 MG, QD
     Route: 048
     Dates: start: 20140826, end: 20150624
  2. COMETRIQ [Suspect]
     Active Substance: CABOZANTINIB S-MALATE
     Dosage: 100 MG, UNK
     Route: 048
     Dates: start: 20140721, end: 20140727
  3. COMETRIQ [Suspect]
     Active Substance: CABOZANTINIB S-MALATE
     Indication: MEDULLARY THYROID CANCER
     Dosage: 140 MG, UNK
     Route: 048
     Dates: start: 20140605, end: 20140608

REACTIONS (6)
  - Malignant neoplasm progression [Fatal]
  - Diarrhoea [Not Recovered/Not Resolved]
  - Tumour necrosis [Recovering/Resolving]
  - Renal failure [Recovering/Resolving]
  - Infection [Recovering/Resolving]
  - Asthenia [Recovering/Resolving]

NARRATIVE: CASE EVENT DATE: 20140608
